FAERS Safety Report 12921865 (Version 2)
Quarter: 2016Q4

REPORT INFORMATION
  Report Type: Report from Study
  Country: US (occurrence: US)
  Receive Date: 20161108
  Receipt Date: 20161201
  Transmission Date: 20170207
  Serious: Yes (Other)
  Sender: FDA-Public Use
  Company Number: US-MALLINCKRODT-T201603822

PATIENT
  Age: 45 Year
  Sex: Male

DRUGS (2)
  1. REPOSITORY CORTICOTROPIN INJECTION [Suspect]
     Active Substance: CORTICOTROPIN
     Indication: NEPHROTIC SYNDROME
     Dosage: 80 UNITS / 1 ML , 2 TIMES PER WEEK
     Route: 058
     Dates: start: 20150421
  2. REPOSITORY CORTICOTROPIN INJECTION [Suspect]
     Active Substance: CORTICOTROPIN
     Indication: IGA NEPHROPATHY
     Dosage: 80 UNITS, TWICE WEEKLY
     Route: 058
     Dates: start: 2015, end: 20150420

REACTIONS (6)
  - Blood glucose increased [Recovering/Resolving]
  - Weight decreased [Not Recovered/Not Resolved]
  - Lethargy [Not Recovered/Not Resolved]
  - Glycosylated haemoglobin increased [Recovering/Resolving]
  - Blood cholesterol decreased [Recovering/Resolving]
  - Protein total increased [Recovering/Resolving]

NARRATIVE: CASE EVENT DATE: 20160817
